FAERS Safety Report 9856128 (Version 1)
Quarter: 2014Q1

REPORT INFORMATION
  Report Type: Spontaneous
  Country: AT (occurrence: AT)
  Receive Date: 20140130
  Receipt Date: 20140130
  Transmission Date: 20141002
  Serious: Yes (Hospitalization)
  Sender: FDA-Public Use
  Company Number: AT-MYLANLABS-2014S1001453

PATIENT
  Age: 80 Year
  Sex: Male

DRUGS (8)
  1. RIVAROXABAN [Suspect]
     Indication: ATRIAL FIBRILLATION
     Dosage: 20MG/D
     Route: 065
  2. HYDROCHLOROTHIAZIDE [Suspect]
     Route: 065
  3. FUROSEMIDE [Suspect]
     Route: 065
  4. ENALAPRIL [Concomitant]
     Route: 065
  5. ALLOPURINOL [Concomitant]
     Route: 065
  6. BISOPROLOL [Concomitant]
     Route: 065
  7. SIMVASTATIN [Concomitant]
     Route: 065
  8. AMLODIPINE [Concomitant]
     Route: 065

REACTIONS (4)
  - Ischaemic stroke [Recovering/Resolving]
  - Urosepsis [Unknown]
  - Epididymitis [Unknown]
  - Diarrhoea [Unknown]
